FAERS Safety Report 20691529 (Version 1)
Quarter: 2022Q2

REPORT INFORMATION
  Report Type: Spontaneous
  Country: US (occurrence: None)
  Receive Date: 20220406
  Receipt Date: 20220406
  Transmission Date: 20220720
  Serious: Yes (Hospitalization)
  Sender: FDA-Public Use
  Company Number: None

PATIENT
  Age: 64 Year
  Sex: Female

DRUGS (1)
  1. COPAXONE [Suspect]
     Active Substance: GLATIRAMER ACETATE
     Indication: Multiple sclerosis
     Dosage: FREQUENCY : 3 TIMES A WEEK;?
     Route: 058
     Dates: start: 20130110

REACTIONS (7)
  - Multiple sclerosis relapse [None]
  - Hemiparesis [None]
  - Feeling abnormal [None]
  - Diplopia [None]
  - Dysphagia [None]
  - Pain [None]
  - Speech disorder [None]

NARRATIVE: CASE EVENT DATE: 20220331
